FAERS Safety Report 9156307 (Version 3)
Quarter: 2013Q2

REPORT INFORMATION
  Report Type: Spontaneous
  Country: US (occurrence: US)
  Receive Date: 20130312
  Receipt Date: 20130503
  Transmission Date: 20140414
  Serious: No
  Sender: FDA-Public Use
  Company Number: US-B.I. PHARMACEUTICALS,INC./RIDGEFIELD-2013-BI-06173BP

PATIENT
  Age: 86 Year
  Sex: Male
  Weight: 86.64 kg

DRUGS (8)
  1. SPIRIVA [Suspect]
     Indication: CHRONIC OBSTRUCTIVE PULMONARY DISEASE
     Dosage: 18 MCG
     Route: 055
     Dates: start: 201208
  2. ZOLPIDEM [Concomitant]
  3. PROTONIX [Concomitant]
  4. CARTIA [Concomitant]
  5. PLAVIX [Concomitant]
  6. CRESTOR [Concomitant]
  7. AVODART [Concomitant]
  8. CITALOPRAM [Concomitant]

REACTIONS (3)
  - Increased upper airway secretion [Not Recovered/Not Resolved]
  - Product quality issue [Unknown]
  - Product quality issue [Unknown]
